FAERS Safety Report 9841930 (Version 1)
Quarter: 2014Q1

REPORT INFORMATION
  Report Type: Spontaneous
  Country: US (occurrence: US)
  Receive Date: 20140124
  Receipt Date: 20140124
  Transmission Date: 20141002
  Serious: Yes (Other)
  Sender: FDA-Public Use
  Company Number: US-GLAXOSMITHKLINE-A1057816A

PATIENT
  Age: 55 Year
  Sex: Female

DRUGS (1)
  1. ABREVA [Suspect]
     Indication: ORAL HERPES
     Route: 061
     Dates: start: 20140120

REACTIONS (3)
  - Application site infection [Unknown]
  - Application site inflammation [Not Recovered/Not Resolved]
  - Drug ineffective [Unknown]
